FAERS Safety Report 10559663 (Version 1)
Quarter: 2014Q4

REPORT INFORMATION
  Report Type: Spontaneous
  Country: SZ (occurrence: None)
  Receive Date: 20141030
  Receipt Date: 20141030
  Transmission Date: 20150529
  Serious: Yes (Other)
  Sender: FDA-Public Use
  Company Number: 20140685

PATIENT
  Age: 39 Year
  Sex: Female

DRUGS (5)
  1. TOILAX (BISACODYL) [Concomitant]
  2. OMEPRAZOLE. [Concomitant]
     Active Substance: OMEPRAZOLE
  3. LEVAXIN (LEVOTHYROXINE SODIUM) [Concomitant]
  4. FERINJECT [Suspect]
     Active Substance: FERRIC CARBOXYMALTOSE
     Indication: IRON DEFICIENCY ANAEMIA
     Route: 042
     Dates: end: 20140919
  5. MOVICOL (SODIUM BICARBONATE) [Concomitant]

REACTIONS (4)
  - Dizziness [None]
  - Asthenia [None]
  - Pallor [None]
  - Nausea [None]

NARRATIVE: CASE EVENT DATE: 20140919
